FAERS Safety Report 5581727-5 (Version None)
Quarter: 2008Q1

REPORT INFORMATION
  Report Type: 
  Country: None (occurrence: None)
  Receive Date: 20080104
  Receipt Date: 20071224
  Transmission Date: 20080703
  Serious: Yes (Hospitalization)
  Sender: FDA-Public Use
  Company Number: GB-JNJFOC-20071002851

PATIENT
  Sex: Male

DRUGS (10)
  1. ETRAVIRINE [Suspect]
     Indication: HIV INFECTION
     Route: 048
  2. TEGRETOL [Interacting]
     Indication: CONVULSION
     Route: 048
  3. PREZISTA [Concomitant]
     Indication: HIV INFECTION
     Route: 048
  4. RITONAVIR [Concomitant]
     Indication: HIV INFECTION
     Route: 048
  5. TRUVADA [Concomitant]
     Indication: HIV INFECTION
     Route: 048
  6. T20 [Concomitant]
     Indication: HIV INFECTION
     Route: 058
  7. FLUOXETINE HCL [Concomitant]
     Indication: ANTIDEPRESSANT THERAPY
     Route: 048
  8. ASPIRIN [Concomitant]
     Indication: ISCHAEMIC HEART DISEASE PROPHYLAXIS
     Route: 048
  9. VALPROATE SODIUM [Concomitant]
     Indication: CONVULSION
     Route: 048
  10. BACLOFEN [Concomitant]
     Indication: MUSCLE SPASMS
     Route: 048

REACTIONS (6)
  - DISTURBANCE IN ATTENTION [None]
  - DIZZINESS [None]
  - DRUG INTERACTION [None]
  - FEELING ABNORMAL [None]
  - MEMORY IMPAIRMENT [None]
  - SOMNOLENCE [None]
